FAERS Safety Report 6646910-6 (Version None)
Quarter: 2010Q1

REPORT INFORMATION
  Report Type: 
  Country: None (occurrence: None)
  Receive Date: 20100308
  Receipt Date: 20100308
  Transmission Date: 20100710
  Serious: No
  Sender: FDA-Public Use
  Company Number: None

PATIENT
  Age: 48 Year
  Sex: Male
  Weight: 88.4514 kg

DRUGS (1)
  1. ALUPENT [Suspect]

REACTIONS (3)
  - DRUG EFFECT DECREASED [None]
  - EXERCISE TOLERANCE DECREASED [None]
  - PRODUCT QUALITY ISSUE [None]
